FAERS Safety Report 6122097-3 (Version None)
Quarter: 2009Q1

REPORT INFORMATION
  Report Type: 
  Country: None (occurrence: None)
  Receive Date: 20090316
  Receipt Date: 20090316
  Transmission Date: 20090719
  Serious: Yes (Other)
  Sender: FDA-Public Use
  Company Number: None

PATIENT
  Age: 59 Year
  Sex: Female
  Weight: 68.0396 kg

DRUGS (1)
  1. ZANAFLEX [Suspect]
     Indication: MUSCLE SPASMS
     Dosage: 2 MG 3 TIMES DAILY PO
     Route: 048
     Dates: start: 20090311, end: 20090313

REACTIONS (3)
  - ANXIETY [None]
  - HEADACHE [None]
  - PANIC ATTACK [None]
